FAERS Safety Report 14942799 (Version 1)
Quarter: 2018Q2

REPORT INFORMATION
  Report Type: Spontaneous
  Country: IT (occurrence: IT)
  Receive Date: 20180528
  Receipt Date: 20180528
  Transmission Date: 20180711
  Serious: Yes (Hospitalization, Other)
  Sender: FDA-Public Use
  Company Number: IT-SUN PHARMACEUTICAL INDUSTRIES LTD-2018RR-173822

PATIENT
  Age: 54 Year
  Sex: Male

DRUGS (17)
  1. OXALIPLATIN. [Suspect]
     Active Substance: OXALIPLATIN
     Dosage: CYCLICAL
     Route: 065
     Dates: start: 201706
  2. FLUOROURACIL. [Suspect]
     Active Substance: FLUOROURACIL
     Indication: COLON CANCER METASTATIC
     Dosage: 46HOURS CONTINUING INFUSION ; CYCLICAL
     Route: 065
     Dates: start: 201706
  3. METHYLPREDNISOLONE. [Suspect]
     Active Substance: METHYLPREDNISOLONE
     Indication: IMMUNOSUPPRESSANT DRUG THERAPY
     Dosage: 1 G, UNK
     Route: 042
  4. OXALIPLATIN. [Suspect]
     Active Substance: OXALIPLATIN
     Indication: COLON CANCER METASTATIC
     Dosage: CYCLICAL
     Route: 065
     Dates: start: 20170223
  5. FLUOROURACIL. [Suspect]
     Active Substance: FLUOROURACIL
     Dosage: CYCLICAL
     Route: 040
     Dates: start: 201706
  6. METHYLPREDNISOLONE. [Suspect]
     Active Substance: METHYLPREDNISOLONE
     Indication: LIMBIC ENCEPHALITIS
  7. PREDNISONE. [Suspect]
     Active Substance: PREDNISONE
     Indication: LIMBIC ENCEPHALITIS
     Dosage: 25 MG, UNK
     Route: 048
  8. IRINOTECAN [Concomitant]
     Active Substance: IRINOTECAN
     Indication: COLON CANCER METASTATIC
     Dosage: CYCLICAL
     Route: 065
     Dates: start: 20170223
  9. VITAMIN D [Concomitant]
     Active Substance: CHOLECALCIFEROL
     Indication: LUMBAR VERTEBRAL FRACTURE
     Dosage: ()
     Route: 065
     Dates: start: 201702
  10. CALCIUM [Concomitant]
     Active Substance: CALCIUM
     Indication: LUMBAR VERTEBRAL FRACTURE
     Dosage: ()
     Route: 065
     Dates: start: 201702
  11. PREDNISONE. [Suspect]
     Active Substance: PREDNISONE
     Indication: IMMUNOSUPPRESSANT DRUG THERAPY
     Dosage: 25 MG, UNK
     Route: 048
  12. LEUCOVORIN. [Suspect]
     Active Substance: LEUCOVORIN
     Dosage: CYCLICAL
     Route: 065
     Dates: start: 201706
  13. DENOSUMAB [Concomitant]
     Active Substance: DENOSUMAB
     Indication: LUMBAR VERTEBRAL FRACTURE
     Dosage: ()
     Route: 065
     Dates: start: 201702
  14. FLUOROURACIL. [Suspect]
     Active Substance: FLUOROURACIL
     Dosage: 46HOURS CONTINUING INFUSION ; CYCLICAL
     Route: 065
     Dates: start: 20170223
  15. BEVACIZUMAB. [Suspect]
     Active Substance: BEVACIZUMAB
     Dosage: DAY 1, EVERY 14 DAYS ; CYCLICAL
     Route: 042
     Dates: start: 20170223
  16. LEUCOVORIN. [Suspect]
     Active Substance: LEUCOVORIN
     Indication: COLON CANCER METASTATIC
     Dosage: CYCLICAL
     Route: 065
     Dates: start: 20170223
  17. BEVACIZUMAB. [Suspect]
     Active Substance: BEVACIZUMAB
     Indication: COLON CANCER METASTATIC
     Dosage: DAY 1, EVERY 14 DAYS ; CYCLICAL
     Route: 042
     Dates: start: 201706

REACTIONS (15)
  - Sleep disorder [Recovering/Resolving]
  - Amnesia [Recovering/Resolving]
  - Limbic encephalitis [Recovering/Resolving]
  - Hallucination [Recovering/Resolving]
  - Bradykinesia [Recovering/Resolving]
  - Speech disorder [Recovering/Resolving]
  - Depressed level of consciousness [Recovering/Resolving]
  - Disorientation [Recovering/Resolving]
  - Somnolence [Recovering/Resolving]
  - Psychomotor hyperactivity [Recovering/Resolving]
  - Mental status changes [Recovering/Resolving]
  - Cognitive disorder [Recovering/Resolving]
  - Lethargy [Recovering/Resolving]
  - Body temperature increased [Recovering/Resolving]
  - Therapeutic response decreased [Unknown]

NARRATIVE: CASE EVENT DATE: 20170403
